FAERS Safety Report 12719401 (Version 3)
Quarter: 2017Q1

REPORT INFORMATION
  Report Type: Spontaneous
  Country: US (occurrence: US)
  Receive Date: 20160907
  Receipt Date: 20170308
  Transmission Date: 20170428
  Serious: No
  Sender: FDA-Public Use
  Company Number: US-ASTRAZENECA-2016SE81654

PATIENT
  Sex: Female

DRUGS (2)
  1. PULMICORT FLEXHALER [Suspect]
     Active Substance: BUDESONIDE
     Indication: CHRONIC OBSTRUCTIVE PULMONARY DISEASE
     Dosage: 180 MCG, 1-2 PUFFS ONCE OR TWICE PER DAY
     Route: 055
  2. PULMICORT FLEXHALER [Suspect]
     Active Substance: BUDESONIDE
     Indication: BRONCHITIS
     Dosage: 180 MCG, 1-2 PUFFS ONCE OR TWICE PER DAY
     Route: 055

REACTIONS (6)
  - Intentional product misuse [Unknown]
  - Device issue [Unknown]
  - Memory impairment [Unknown]
  - Fatigue [Unknown]
  - Hypersomnia [Unknown]
  - Malaise [Unknown]
